FAERS Safety Report 4883337-1 (Version None)
Quarter: 2006Q1

REPORT INFORMATION
  Report Type: 
  Country: None (occurrence: None)
  Receive Date: 20060118
  Receipt Date: 20051128
  Transmission Date: 20060701
  Serious: Yes (Death)
  Sender: FDA-Public Use
  Company Number: JP-JPN-A20052898

PATIENT
  Age: 53 Year
  Sex: Male
  Weight: 87 kg

DRUGS (32)
  1. ALKERAN [Suspect]
     Indication: ALLOGENIC BONE MARROW TRANSPLANTATION THERAPY
     Route: 042
     Dates: start: 20030117, end: 20030119
  2. TACROLIMUS HYDRATE [Suspect]
     Indication: IMMUNOSUPPRESSANT DRUG THERAPY
     Route: 065
     Dates: start: 20030122, end: 20030129
  3. HORSE IMMUNOGLOBULIN [Suspect]
     Indication: IMMUNOSUPPRESSANT DRUG THERAPY
     Dates: start: 20030205, end: 20030209
  4. SOLU-MEDROL [Suspect]
     Indication: IMMUNOSUPPRESSANT DRUG THERAPY
     Dates: start: 20030205, end: 20030212
  5. FOY [Suspect]
     Route: 042
     Dates: start: 20030206, end: 20030219
  6. AZACTAM [Suspect]
     Dates: start: 20030117, end: 20030131
  7. CARBENIN [Suspect]
     Route: 042
     Dates: start: 20030131, end: 20030207
  8. CYMERIN [Concomitant]
     Indication: ALLOGENIC BONE MARROW TRANSPLANTATION THERAPY
     Route: 042
     Dates: start: 20030108, end: 20030108
  9. GRAN [Concomitant]
     Dates: start: 20030125, end: 20030225
  10. GRAN [Concomitant]
     Dates: start: 20030303, end: 20030317
  11. CYCLOSPORINE [Concomitant]
     Indication: IMMUNOSUPPRESSANT DRUG THERAPY
     Route: 065
     Dates: start: 20030309, end: 20030315
  12. PREDONINE [Concomitant]
     Indication: IMMUNOSUPPRESSANT DRUG THERAPY
     Route: 065
     Dates: start: 20030213, end: 20030318
  13. GAMMAGARD [Concomitant]
     Route: 042
     Dates: start: 20030117, end: 20030118
  14. GAMMAGARD [Concomitant]
     Route: 042
     Dates: start: 20030221, end: 20030222
  15. MEROPEN [Concomitant]
     Route: 042
     Dates: start: 20030116, end: 20030117
  16. MEROPEN [Concomitant]
     Route: 042
     Dates: start: 20030225, end: 20030314
  17. DIFLUCAN [Concomitant]
     Route: 042
     Dates: start: 20030127, end: 20030201
  18. VANCOMYCIN [Concomitant]
     Route: 042
     Dates: start: 20030127, end: 20030129
  19. FUTHAN [Concomitant]
     Route: 042
     Dates: start: 20030203, end: 20030206
  20. FOSCARNET SODIUM [Concomitant]
     Route: 042
     Dates: start: 20030317, end: 20030318
  21. GASTER [Concomitant]
     Route: 048
     Dates: start: 20030106, end: 20030108
  22. GASTER [Concomitant]
     Dates: start: 20030108, end: 20030318
  23. SELBEX [Concomitant]
     Route: 048
     Dates: start: 20030106, end: 20030207
  24. NYSTATIN [Concomitant]
     Route: 048
     Dates: start: 20030117, end: 20030207
  25. ISCOTIN [Concomitant]
     Route: 048
     Dates: start: 20030117, end: 20030207
  26. ZOVIRAX [Concomitant]
     Route: 048
     Dates: start: 20030117, end: 20030207
  27. URSO [Concomitant]
     Route: 048
     Dates: start: 20030117, end: 20030207
  28. GANCICLOVIR [Concomitant]
  29. CHINESE HERBAL MEDICINE [Concomitant]
  30. LOMEFLOXACIN [Concomitant]
  31. BERBERINE CHLORIDE [Concomitant]
  32. GLYCYRRHIZIN [Concomitant]

REACTIONS (12)
  - BLOOD CREATININE INCREASED [None]
  - C-REACTIVE PROTEIN INCREASED [None]
  - CONVULSION [None]
  - CYTOMEGALOVIRUS VIRAEMIA [None]
  - DISSEMINATED INTRAVASCULAR COAGULATION [None]
  - GRAFT VERSUS HOST DISEASE [None]
  - HAEMORRHAGE [None]
  - PNEUMONIA CYTOMEGALOVIRAL [None]
  - PROTHROMBIN TIME PROLONGED [None]
  - RENAL FAILURE ACUTE [None]
  - SEPSIS [None]
  - STAPHYLOCOCCAL SEPSIS [None]
